FAERS Safety Report 24758169 (Version 3)
Quarter: 2025Q1

REPORT INFORMATION
  Report Type: Report from Study
  Country: GB (occurrence: GB)
  Receive Date: 20241220
  Receipt Date: 20250213
  Transmission Date: 20250409
  Serious: Yes (Other)
  Sender: EMD SERONO INC
  Company Number: GB-Merck Healthcare KGaA-2023468665

PATIENT
  Age: 62 Year
  Sex: Female

DRUGS (9)
  1. MAVENCLAD [Suspect]
     Active Substance: CLADRIBINE
     Indication: Multiple sclerosis
     Dates: start: 20230724
  2. MAVENCLAD [Suspect]
     Active Substance: CLADRIBINE
     Dates: start: 20230821
  3. MAVENCLAD [Suspect]
     Active Substance: CLADRIBINE
     Dates: start: 20240812, end: 20240816
  4. MAVENCLAD [Suspect]
     Active Substance: CLADRIBINE
     Dates: start: 20240909
  5. GABAPENTIN [Concomitant]
     Active Substance: GABAPENTIN
     Indication: Product used for unknown indication
     Dates: start: 201806
  6. FOLIC ACID [Concomitant]
     Active Substance: FOLIC ACID
     Indication: Product used for unknown indication
  7. OMEPRAZOLE [Concomitant]
     Active Substance: OMEPRAZOLE
     Indication: Product used for unknown indication
  8. RIZATRIPTAN [Concomitant]
     Active Substance: RIZATRIPTAN
     Indication: Product used for unknown indication
  9. HYDROXOCOBALAMIN [Concomitant]
     Active Substance: HYDROXOCOBALAMIN
     Indication: Product used for unknown indication

REACTIONS (7)
  - Lower respiratory tract infection [Recovered/Resolved]
  - Lymphocyte count decreased [Not Recovered/Not Resolved]
  - White blood cell count decreased [Recovering/Resolving]
  - Nasopharyngitis [Recovered/Resolved]
  - Infection [Unknown]
  - Monocyte count decreased [Recovering/Resolving]
  - Eosinophil count increased [Unknown]

NARRATIVE: CASE EVENT DATE: 20240704
